FAERS Safety Report 4384848-8 (Version None)
Quarter: 2004Q2

REPORT INFORMATION
  Report Type: 
  Country: None (occurrence: None)
  Receive Date: 20040621
  Receipt Date: 20040607
  Transmission Date: 20050107
  Serious: Yes (Hospitalization)
  Sender: FDA-Public Use
  Company Number: 2004-UK-00544UK

PATIENT
  Age: 74 Year
  Sex: Male

DRUGS (8)
  1. SPIRIVA [Suspect]
     Indication: CHRONIC OBSTRUCTIVE AIRWAYS DISEASE
     Dosage: 18 MCG (18 MCG, QD), IH
     Route: 055
     Dates: start: 20030611
  2. FRUSEMIDE (FUROSEMIDE) (NR) [Concomitant]
  3. LOSARTAN (LOSARTAN) (NR) [Concomitant]
  4. ISOSORBIDE (ISOSORBIDE) (NR) [Concomitant]
  5. SEREVENT [Concomitant]
  6. QVAR (BECLOMETASONE DIPROPIONATE) (NR) [Concomitant]
  7. VENTOLIN [Concomitant]
  8. GTN (GLYCERYL TRINITRATE) (NR) [Concomitant]

REACTIONS (6)
  - ACUTE CORONARY SYNDROME [None]
  - ANGINA PECTORIS [None]
  - ATRIAL FIBRILLATION [None]
  - CONDUCTION DISORDER [None]
  - PALPITATIONS [None]
  - VENTRICULAR TACHYCARDIA [None]
